FAERS Safety Report 13580834 (Version 1)
Quarter: 2017Q2

REPORT INFORMATION
  Report Type: Spontaneous
  Country: US (occurrence: US)
  Receive Date: 20170525
  Receipt Date: 20170525
  Transmission Date: 20170830
  Serious: Yes (Hospitalization)
  Sender: FDA-Public Use
  Company Number: US-STRIDES ARCOLAB LIMITED-2017SP008375

PATIENT

DRUGS (1)
  1. MYCOPHENOLATE MOFETIL. [Suspect]
     Active Substance: MYCOPHENOLATE MOFETIL
     Indication: ANTI-NEUTROPHIL CYTOPLASMIC ANTIBODY POSITIVE VASCULITIS
     Dosage: UNK, UNKNOWN
     Route: 065

REACTIONS (13)
  - Renal failure [Not Recovered/Not Resolved]
  - Pancytopenia [Unknown]
  - Streptococcal infection [Unknown]
  - Cardiac valve vegetation [Unknown]
  - Subacute endocarditis [Unknown]
  - Petechiae [Recovered/Resolved]
  - Cardiac murmur [Unknown]
  - Vasculitis [Unknown]
  - Off label use [Unknown]
  - Aortic valve incompetence [Unknown]
  - Renal impairment [Not Recovered/Not Resolved]
  - Purpura [Recovered/Resolved]
  - Generalised oedema [Unknown]
